FAERS Safety Report 16589409 (Version 2)
Quarter: 2019Q3

REPORT INFORMATION
  Report Type: Spontaneous
  Country: US (occurrence: US)
  Receive Date: 20190718
  Receipt Date: 20190726
  Transmission Date: 20191004
  Serious: No
  Sender: FDA-Public Use
  Company Number: US-BIOGEN-2019BI00758590

PATIENT
  Sex: Female

DRUGS (1)
  1. AVONEX [Suspect]
     Active Substance: INTERFERON BETA-1A
     Indication: MULTIPLE SCLEROSIS
     Route: 030
     Dates: start: 20051101, end: 20070101

REACTIONS (8)
  - Gait disturbance [Unknown]
  - Temperature intolerance [Unknown]
  - Hemiparesis [Unknown]
  - Clumsiness [Unknown]
  - Malaise [Recovered/Resolved]
  - Hypoaesthesia [Unknown]
  - Anxiety [Unknown]
  - Influenza like illness [Recovered/Resolved]
